FAERS Safety Report 20945347 (Version 1)
Quarter: 2022Q2

REPORT INFORMATION
  Report Type: Spontaneous
  Country: JP (occurrence: JP)
  Receive Date: 20220610
  Receipt Date: 20220610
  Transmission Date: 20220721
  Serious: Yes (Hospitalization)
  Sender: FDA-Public Use
  Company Number: JP-ELI_LILLY_AND_COMPANY-JP202204008417

PATIENT
  Age: 67 Year
  Sex: Male

DRUGS (7)
  1. NECITUMUMAB [Suspect]
     Active Substance: NECITUMUMAB
     Indication: Lung squamous cell carcinoma stage II
     Dosage: 800 MG, OTHER
     Route: 041
     Dates: start: 20220317
  2. GEMCITABINE HYDROCHLORIDE [Suspect]
     Active Substance: GEMCITABINE HYDROCHLORIDE
     Indication: Lung squamous cell carcinoma stage II
     Dosage: 2000 MG, OTHER
     Route: 041
     Dates: start: 20220317
  3. CISPLATIN [Suspect]
     Active Substance: CISPLATIN
     Indication: Lung squamous cell carcinoma stage II
     Dosage: 120 MG, OTHER
     Route: 041
     Dates: start: 20220317
  4. MINOCYCLINE HYDROCHLORIDE [Suspect]
     Active Substance: MINOCYCLINE HYDROCHLORIDE
     Indication: Skin disorder prophylaxis
     Dosage: UNK
     Route: 048
     Dates: start: 20220317, end: 20220407
  5. HERBALS [Concomitant]
     Active Substance: HERBALS
     Dosage: UNK
     Route: 048
     Dates: start: 20211028, end: 20220407
  6. HUSCODE [Concomitant]
     Active Substance: CHLORPHENIRAMINE MALEATE\DIHYDROCODEINE PHOSPHATE\METHYLEPHEDRINE HYDROCHLORIDE, DL-
     Indication: Cough
     Dosage: UNK
     Route: 048
     Dates: start: 20220303
  7. EPINASTINE [Concomitant]
     Active Substance: EPINASTINE
     Indication: Seasonal allergy
     Dosage: UNK
     Route: 048
     Dates: start: 20201008, end: 20220416

REACTIONS (4)
  - Neutrophil count decreased [Recovered/Resolved]
  - Pyrexia [Recovered/Resolved]
  - Rash [Recovering/Resolving]
  - Stomatitis [Not Recovered/Not Resolved]

NARRATIVE: CASE EVENT DATE: 20220328
